FAERS Safety Report 12160650 (Version 2)
Quarter: 2016Q2

REPORT INFORMATION
  Report Type: Report from Study
  Country: US (occurrence: US)
  Receive Date: 20160308
  Receipt Date: 20160401
  Transmission Date: 20160815
  Serious: Yes (Other)
  Sender: FDA-Public Use
  Company Number: US-AMGEN-USASL2016026809

PATIENT
  Age: 61 Year
  Sex: Male
  Weight: 73.92 kg

DRUGS (7)
  1. ENBREL [Suspect]
     Active Substance: ETANERCEPT
     Indication: RHEUMATOID ARTHRITIS
     Dosage: 50 MG, QWK
     Route: 058
     Dates: start: 20120417
  2. TYLENOL [Concomitant]
     Active Substance: ACETAMINOPHEN
     Dosage: UNK
  3. PLAQUENIL                          /00072602/ [Concomitant]
     Active Substance: HYDROXYCHLOROQUINE DIPHOSPHATE
     Dosage: 200 MG, BID
  4. ARAVA [Concomitant]
     Active Substance: LEFLUNOMIDE
     Dosage: UNK
  5. AZULFIDINE [Concomitant]
     Active Substance: SULFASALAZINE
     Dosage: 50 MG, BID
  6. METHOTREXATE [Suspect]
     Active Substance: METHOTREXATE
     Indication: PRODUCT USED FOR UNKNOWN INDICATION
     Dosage: UNK
     Route: 065
  7. TREXALL [Suspect]
     Active Substance: METHOTREXATE SODIUM
     Indication: PRODUCT USED FOR UNKNOWN INDICATION
     Dosage: 15 MG, QWK
     Route: 065

REACTIONS (20)
  - Deafness [Unknown]
  - Osteoarthritis [Unknown]
  - Insomnia [Unknown]
  - Stress fracture [Recovering/Resolving]
  - Dyspepsia [Unknown]
  - Blood pressure abnormal [Unknown]
  - Chronic kidney disease [Unknown]
  - Joint swelling [Unknown]
  - Epigastric discomfort [Recovered/Resolved]
  - Joint range of motion decreased [Unknown]
  - Hypertrophy [Unknown]
  - Hypoacusis [Unknown]
  - Feeling abnormal [Unknown]
  - Arthralgia [Not Recovered/Not Resolved]
  - Device use error [Unknown]
  - Somnolence [Unknown]
  - Nodule [Unknown]
  - Discomfort [Not Recovered/Not Resolved]
  - Musculoskeletal stiffness [Unknown]
  - Memory impairment [Unknown]
